FAERS Safety Report 11365094 (Version 1)
Quarter: 2015Q3

REPORT INFORMATION
  Report Type: Spontaneous
  Country: FR (occurrence: FR)
  Receive Date: 20150811
  Receipt Date: 20150811
  Transmission Date: 20151125
  Serious: Yes (Hospitalization)
  Sender: FDA-Public Use
  Company Number: FR-PFIZER INC-2015262335

PATIENT
  Age: 90 Year
  Sex: Female

DRUGS (4)
  1. PREVISCAN [Interacting]
     Active Substance: FLUINDIONE
     Dosage: UNK
     Route: 048
     Dates: start: 20150623, end: 20150625
  2. PREVISCAN [Interacting]
     Active Substance: FLUINDIONE
     Indication: PULMONARY EMBOLISM
     Dosage: UNK
     Route: 048
     Dates: end: 20150622
  3. TRIFLUCAN [Suspect]
     Active Substance: FLUCONAZOLE
     Indication: FUNGAL INFECTION
     Dosage: UNK
     Route: 048
     Dates: start: 20150617, end: 20150624
  4. MONAZOL [Interacting]
     Active Substance: SERTACONAZOLE NITRATE
     Indication: FUNGAL INFECTION
     Dosage: UNK
     Route: 003
     Dates: start: 20150610, end: 20150624

REACTIONS (4)
  - Melaena [Recovering/Resolving]
  - Drug interaction [Recovering/Resolving]
  - Rectal haemorrhage [Recovering/Resolving]
  - Haemorrhagic anaemia [Recovering/Resolving]

NARRATIVE: CASE EVENT DATE: 20150625
